FAERS Safety Report 6222693-9 (Version None)
Quarter: 2009Q2

REPORT INFORMATION
  Report Type: 
  Country: None (occurrence: None)
  Receive Date: 20090611
  Receipt Date: 20090604
  Transmission Date: 20091009
  Serious: Yes (Other)
  Sender: FDA-Public Use
  Company Number: US-ASTRAZENECA-2009UW14241

PATIENT
  Age: 58 Year
  Sex: Female
  Weight: 122.5 kg

DRUGS (5)
  1. ARIMIDEX [Suspect]
     Route: 048
     Dates: start: 20080801
  2. FEMARA [Suspect]
     Route: 065
     Dates: start: 20090101
  3. ALEVE [Concomitant]
     Dosage: 2 TABLETS
  4. VICODIN [Concomitant]
  5. DIABETES [Concomitant]

REACTIONS (4)
  - ABASIA [None]
  - ARTHRALGIA [None]
  - BONE PAIN [None]
  - RENAL DISORDER [None]
